FAERS Safety Report 18751052 (Version 2)
Quarter: 2022Q2

REPORT INFORMATION
  Report Type: Spontaneous
  Country: US (occurrence: US)
  Receive Date: 20210118
  Receipt Date: 20220414
  Transmission Date: 20220721
  Serious: Yes (Other)
  Sender: FDA-Public Use
  Company Number: US-GLAXOSMITHKLINE-US2021GSK010806

PATIENT
  Sex: Female

DRUGS (4)
  1. RANITIDINE [Suspect]
     Active Substance: RANITIDINE
     Indication: Hereditary angioedema
     Dosage: 300 MG, QD
     Route: 065
     Dates: start: 201108, end: 201909
  2. RANITIDINE [Suspect]
     Active Substance: RANITIDINE
     Dosage: 300 MG, QD
     Route: 065
     Dates: start: 201108, end: 201909
  3. RANITIDINE [Suspect]
     Active Substance: RANITIDINE
     Indication: Hereditary angioedema
     Dosage: 300 MG, QD
     Route: 065
     Dates: start: 201108, end: 201909
  4. RANITIDINE [Suspect]
     Active Substance: RANITIDINE
     Dosage: 300 MG, QD
     Route: 065
     Dates: start: 201108, end: 201909

REACTIONS (1)
  - Breast cancer [Unknown]
